FAERS Safety Report 13381519 (Version 1)
Quarter: 2017Q1

REPORT INFORMATION
  Report Type: Spontaneous
  Country: PE (occurrence: PE)
  Receive Date: 20170329
  Receipt Date: 20170329
  Transmission Date: 20170429
  Serious: Yes (Death, Other)
  Sender: FDA-Public Use
  Company Number: PE-AMGEN-PERSP2017048010

PATIENT
  Age: 90 Year
  Sex: Female

DRUGS (1)
  1. PROLIA [Suspect]
     Active Substance: DENOSUMAB
     Indication: OSTEOPOROSIS
     Dosage: 60 MG/ML, CYCLICAL
     Route: 058

REACTIONS (1)
  - Intestinal obstruction [Fatal]
